FAERS Safety Report 17448208 (Version 2)
Quarter: 2020Q1

REPORT INFORMATION
  Report Type: Report from Study
  Country: CO (occurrence: CO)
  Receive Date: 20200222
  Receipt Date: 20200229
  Transmission Date: 20200409
  Serious: Yes (Death, Hospitalization)
  Sender: FDA-Public Use
  Company Number: NVSC2020CO046130

PATIENT
  Age: 57 Year
  Sex: Female
  Weight: 74 kg

DRUGS (1)
  1. RYDAPT [Suspect]
     Active Substance: MIDOSTAURIN
     Indication: ACUTE MYELOID LEUKAEMIA
     Dosage: 50 MG, Q12H
     Route: 048

REACTIONS (5)
  - Mucosal inflammation [Unknown]
  - Gastritis [Unknown]
  - Death [Fatal]
  - Decreased immune responsiveness [Unknown]
  - Vomiting [Unknown]

NARRATIVE: CASE EVENT DATE: 20200219
